FAERS Safety Report 7404486-X (Version None)
Quarter: 2011Q2

REPORT INFORMATION
  Report Type: 
  Country: None (occurrence: None)
  Receive Date: 20110408
  Receipt Date: 20110405
  Transmission Date: 20111010
  Serious: Yes (Hospitalization, Other)
  Sender: FDA-Public Use
  Company Number: VE-PFIZER INC-2011070963

PATIENT
  Age: 65 Year
  Sex: Female

DRUGS (2)
  1. RIVOTRIL [Concomitant]
     Dosage: 2 MG, UNK
  2. LYRICA [Suspect]
     Indication: INTERVERTEBRAL DISC DEGENERATION
     Dosage: 75 MG, 2X/DAY
     Route: 048
     Dates: start: 20100701

REACTIONS (2)
  - SEDATION [None]
  - LOSS OF CONSCIOUSNESS [None]
